FAERS Safety Report 18276722 (Version 1)
Quarter: 2020Q3

REPORT INFORMATION
  Report Type: Report from Study
  Country: US (occurrence: US)
  Receive Date: 20200917
  Receipt Date: 20200917
  Transmission Date: 20201103
  Serious: No
  Sender: FDA-Public Use
  Company Number: US-BIOVITRUM-2020US4417

PATIENT
  Age: 12 Year
  Sex: Female

DRUGS (1)
  1. KINERET [Suspect]
     Active Substance: ANAKINRA
     Indication: RELAPSING FEVER
     Route: 058
     Dates: start: 20190711

REACTIONS (6)
  - Injection site erythema [Unknown]
  - Off label use [Unknown]
  - Intentional product misuse [Unknown]
  - Injection site bruising [Unknown]
  - Injection site swelling [Unknown]
  - Pain [Unknown]

NARRATIVE: CASE EVENT DATE: 20190711
